FAERS Safety Report 19693359 (Version 2)
Quarter: 2021Q3

REPORT INFORMATION
  Report Type: Spontaneous
  Country: FR (occurrence: FR)
  Receive Date: 20210812
  Receipt Date: 20210907
  Transmission Date: 20211014
  Serious: Yes (Other)
  Sender: FDA-Public Use
  Company Number: FR-BAYER-2021-190057

PATIENT
  Age: 35 Year
  Sex: Female
  Weight: 87 kg

DRUGS (6)
  1. METHOTREXATE DISODIUM [Suspect]
     Active Substance: METHOTREXATE SODIUM
     Indication: RHEUMATOID ARTHRITIS
     Dosage: TRAITEMENT AU LONG COURS (DATE INCONNUE)
     Route: 048
     Dates: end: 20201224
  2. METHOTREXATE DISODIUM [Suspect]
     Active Substance: METHOTREXATE SODIUM
     Indication: RHEUMATOID ARTHRITIS
     Dosage: DIMINUTION DE LA POSOLOGIE ET PASSAGE EN SOUS?CUTAN?
     Route: 058
     Dates: start: 20201224, end: 20210122
  3. ORENCIA [Suspect]
     Active Substance: ABATACEPT
     Indication: RHEUMATOID ARTHRITIS
     Dosage: 750 MG TOUTES LES 4 SEMAINES
     Route: 041
     Dates: start: 20141103, end: 20210427
  4. SPECIAFOLDINE [Concomitant]
     Active Substance: FOLIC ACID
  5. ORENCIA [Suspect]
     Active Substance: ABATACEPT
     Indication: RHEUMATOID ARTHRITIS
  6. MIRENA [Suspect]
     Active Substance: LEVONORGESTREL
     Indication: CONTRACEPTION
     Dosage: 20 UG, DAILY
     Route: 015

REACTIONS (1)
  - Breast cancer [Not Recovered/Not Resolved]

NARRATIVE: CASE EVENT DATE: 20210604
